FAERS Safety Report 6939604-0 (Version None)
Quarter: 2010Q3

REPORT INFORMATION
  Report Type: 
  Country: None (occurrence: None)
  Receive Date: 20100820
  Receipt Date: 20100810
  Transmission Date: 20110219
  Serious: Yes (Hospitalization)
  Sender: FDA-Public Use
  Company Number: TCI2010A03188

PATIENT
  Age: 51 Year
  Sex: Male

DRUGS (3)
  1. ACTOS [Suspect]
     Indication: TYPE 2 DIABETES MELLITUS
     Dosage: 15 MG (15 MG, 1 D) PER ORAL
     Route: 048
     Dates: start: 20091224
  2. SULFONAMIDES, UREA DERIVATIVES [Concomitant]
  3. BIGUANIDES [Concomitant]

REACTIONS (1)
  - CEREBRAL INFARCTION [None]
